FAERS Safety Report 19563114 (Version 1)
Quarter: 2021Q3

REPORT INFORMATION
  Report Type: Report from Study
  Country: MA (occurrence: MA)
  Receive Date: 20210716
  Receipt Date: 20210716
  Transmission Date: 20211014
  Serious: Yes (Death, Other)
  Sender: FDA-Public Use
  Company Number: NVSC2021MA156605

PATIENT
  Sex: Male

DRUGS (1)
  1. AFINITOR [Suspect]
     Active Substance: EVEROLIMUS
     Indication: PANCREATIC CARCINOMA
     Dosage: 5 MG, BID
     Route: 048
     Dates: start: 20200831

REACTIONS (6)
  - Liver injury [Unknown]
  - Rectal haemorrhage [Unknown]
  - Illness [Unknown]
  - Incoherent [Unknown]
  - Death [Fatal]
  - Haematemesis [Unknown]
